FAERS Safety Report 21628008 (Version 2)
Quarter: 2022Q4

REPORT INFORMATION
  Report Type: Spontaneous
  Country: CN (occurrence: CN)
  Receive Date: 20221122
  Receipt Date: 20221124
  Transmission Date: 20230112
  Serious: Yes (Life-Threatening, Hospitalization, Other)
  Sender: FDA-Public Use
  Company Number: CN-MLMSERVICE-20221111-3914427-1

PATIENT
  Age: 12 Year
  Sex: Female

DRUGS (7)
  1. METHOTREXATE SODIUM [Interacting]
     Active Substance: METHOTREXATE SODIUM
     Indication: Osteosarcoma
     Dosage: 12 G/M2 (G/M2)
     Route: 042
  2. METHOTREXATE SODIUM [Interacting]
     Active Substance: METHOTREXATE SODIUM
     Dosage: 6 G/M2 (G/M2)
     Route: 042
  3. DEXTROSE [Concomitant]
     Active Substance: DEXTROSE
     Dosage: 500 ML, MTX WAS DISSOLVED IN 500 ML OF D5W AND INFUSED OVER 4 HOURS
     Route: 042
  4. DEXTROSE [Concomitant]
     Active Substance: DEXTROSE
     Dosage: HYDRATED WITH THE SAME FLUID TO A TOTAL OF 3000-4000 ML/M2 PER DAY DURING THE FIRST 48 HOURS
     Route: 042
  5. DEXTROSE [Concomitant]
     Active Substance: DEXTROSE
     Dosage: 500-1000 ML/M2
     Route: 042
  6. SODIUM BICARBONATE [Concomitant]
     Active Substance: SODIUM BICARBONATE
     Dosage: 5 ML/KG
     Route: 042
  7. SODIUM BICARBONATE [Concomitant]
     Active Substance: SODIUM BICARBONATE
     Dosage: HYDRATED WITH THE SAME FLUID TO A TOTAL OF 3000-4000 ML/M2 PER DAY DURING THE FIRST 48 HOURS
     Route: 042

REACTIONS (4)
  - Acute kidney injury [Recovered/Resolved]
  - Drug-genetic interaction [Unknown]
  - Acute hepatic failure [Recovered/Resolved]
  - Drug clearance decreased [Recovered/Resolved]
